FAERS Safety Report 8947835 (Version 1)
Quarter: 2012Q4

REPORT INFORMATION
  Report Type: Spontaneous
  Country: US (occurrence: None)
  Receive Date: 20121127
  Receipt Date: 20121127
  Transmission Date: 20130627
  Serious: Yes (Hospitalization)
  Sender: FDA-Public Use
  Company Number: TPA2012A09131

PATIENT
  Age: 77 Year
  Sex: Female
  Weight: 61.69 kg

DRUGS (5)
  1. ACTOS (PIOGLITAZONE HYDROCHLORIDE) [Suspect]
     Indication: DIABETES
     Route: 048
     Dates: start: 2007, end: 201204
  2. MELOXICAM (MELOXICAM) [Concomitant]
  3. BENICAR (OLMESARTAN MEDOXOMIL) [Concomitant]
  4. ATORVASTATIN (ATROVASTATIN) [Concomitant]
  5. SERTRALINE HCL (SERTARLINE HYDROCHLORIDE) [Concomitant]

REACTIONS (8)
  - Blood glucose fluctuation [None]
  - Oedema peripheral [None]
  - Chest discomfort [None]
  - Pain in extremity [None]
  - Dry mouth [None]
  - Feeling abnormal [None]
  - Cardiac disorder [None]
  - Palpitations [None]
